FAERS Safety Report 9246384 (Version 1)
Quarter: 2013Q2

REPORT INFORMATION
  Report Type: Spontaneous
  Country: BR (occurrence: BR)
  Receive Date: 20130422
  Receipt Date: 20130422
  Transmission Date: 20140414
  Serious: Yes (Other)
  Sender: FDA-Public Use
  Company Number: BR-GALDERMA-BR13001176

PATIENT
  Age: 33 Year
  Sex: Female
  Weight: 38 kg

DRUGS (5)
  1. DIFFERIN [Suspect]
     Indication: PIGMENTATION DISORDER
     Dosage: 0.3%
     Route: 061
     Dates: start: 20130305, end: 20130319
  2. DIFFERIN [Suspect]
     Indication: ACNE
     Dosage: 0.3%
     Route: 061
     Dates: start: 20130403
  3. DIFFERIN [Suspect]
     Indication: CHLOASMA
  4. DERMOTIVIN ORIGINAL [Concomitant]
     Indication: THERAPEUTIC SKIN CARE TOPICAL
     Route: 061
  5. ROC MINESOL [Concomitant]
     Indication: PROPHYLAXIS
     Route: 061

REACTIONS (4)
  - Face oedema [Recovered/Resolved]
  - Eyelid oedema [Recovered/Resolved]
  - Erythema [Recovered/Resolved]
  - Skin exfoliation [Recovered/Resolved]
